FAERS Safety Report 10421116 (Version 2)
Quarter: 2014Q4

REPORT INFORMATION
  Report Type: Spontaneous
  Country: US (occurrence: None)
  Receive Date: 20140722
  Receipt Date: 20141121
  Transmission Date: 20150528
  Serious: No
  Sender: FDA-Public Use
  Company Number: 163-10004-14060757

PATIENT
  Age: 58 Year
  Sex: Female
  Weight: 61.69 kg

DRUGS (9)
  1. HUMIRA (ADALIMUMAB) [Concomitant]
  2. OTEZLA [Suspect]
     Active Substance: APREMILAST
     Indication: PSORIATIC ARTHROPATHY
     Route: 048
     Dates: start: 20140531
  3. CLARITIN [Concomitant]
     Active Substance: LORATADINE
  4. TUMS [Concomitant]
     Active Substance: CALCIUM CARBONATE
  5. ASPIRIN. [Concomitant]
     Active Substance: ASPIRIN
  6. VIT B (VITAMIN B) [Concomitant]
  7. ADVIL [Concomitant]
     Active Substance: IBUPROFEN
  8. CO-Q10 (UBIDECARENONE) [Concomitant]
  9. VITAMIN D(ERGOCALCIFEROL) [Concomitant]

REACTIONS (2)
  - Myalgia [None]
  - Headache [None]

NARRATIVE: CASE EVENT DATE: 2014
